FAERS Safety Report 9825277 (Version 2)
Quarter: 2014Q2

REPORT INFORMATION
  Report Type: Report from Study
  Country: BR (occurrence: BR)
  Receive Date: 20140117
  Receipt Date: 20140422
  Transmission Date: 20141212
  Serious: Yes (Death)
  Sender: FDA-Public Use
  Company Number: PHHO2014BR000857

PATIENT
  Age: 71 Year
  Sex: Male
  Weight: 99.5 kg

DRUGS (6)
  1. ACETYLSALICYLIC ACID [Suspect]
     Dosage: 100 MG, QD
     Route: 048
     Dates: start: 201110
  2. INC424 [Suspect]
     Indication: MYELOFIBROSIS
     Dosage: 10 MG, BID
     Route: 048
     Dates: start: 20130819, end: 20140107
  3. ATENOLOL [Concomitant]
     Indication: HYPERTENSION
     Dosage: 25 MG, BID
     Route: 048
     Dates: start: 20130529
  4. SIMVASTATIN [Concomitant]
     Indication: DYSLIPIDAEMIA
     Dosage: 40 MG, QD
     Route: 048
     Dates: start: 20130529
  5. OMEPRAZOLE [Concomitant]
     Indication: ABDOMINAL PAIN UPPER
     Dosage: 20 MG, BID
     Route: 048
     Dates: start: 20130920
  6. FUROSEMIDE [Concomitant]
     Indication: OEDEMA PERIPHERAL
     Dosage: 40 MG, QD
     Route: 048
     Dates: start: 201302

REACTIONS (2)
  - Haemothorax [Fatal]
  - Post procedural haemorrhage [Fatal]
